FAERS Safety Report 23350269 (Version 1)
Quarter: 2023Q4

REPORT INFORMATION
  Report Type: Spontaneous
  Country: US (occurrence: None)
  Receive Date: 20231228
  Receipt Date: 20231228
  Transmission Date: 20240110
  Serious: Yes (Other)
  Sender: FDA-Public Use
  Company Number: None

PATIENT
  Sex: Female

DRUGS (10)
  1. CAPECITABINE [Suspect]
     Active Substance: CAPECITABINE
     Indication: Lung carcinoma cell type unspecified stage 0
     Route: 048
     Dates: start: 20211201
  2. ALBUTEROL AER HFA [Concomitant]
  3. VITAMIN B COMPLEX [Concomitant]
     Active Substance: CYANOCOBALAMIN\DEXPANTHENOL\NIACINAMIDE\PYRIDOXINE HYDROCHLORIDE\RIBOFLAVIN 5^-PHOSPHATE SODIUM\THIA
  4. MAGNESIUM [Concomitant]
     Active Substance: MAGNESIUM
  5. ONDANSETRON [Concomitant]
     Active Substance: ONDANSETRON
  6. PROBIOTICS NOS [Concomitant]
     Active Substance: PROBIOTICS NOS
  7. PROCHLORPER [Concomitant]
  8. TEMOZOLOMIDE [Concomitant]
     Active Substance: TEMOZOLOMIDE
  9. TRAZODONE [Concomitant]
     Active Substance: TRAZODONE HYDROCHLORIDE
  10. VITAMIN D [Concomitant]
     Active Substance: VITAMIN D NOS

REACTIONS (4)
  - Thrombosis [None]
  - Therapy cessation [None]
  - Tumour excision [None]
  - Drug ineffective [None]
